FAERS Safety Report 24457458 (Version 1)
Quarter: 2024Q4

REPORT INFORMATION
  Report Type: Spontaneous
  Country: PL (occurrence: PL)
  Receive Date: 20241018
  Receipt Date: 20241018
  Transmission Date: 20250115
  Serious: Yes (Hospitalization)
  Sender: ACCORD
  Company Number: None

PATIENT
  Age: 80 Year
  Sex: Male
  Weight: 54 kg

DRUGS (7)
  1. CAPECITABINE [Suspect]
     Active Substance: CAPECITABINE
     Indication: Colon cancer
     Dosage: 3 TABLETS TWICE A DAY FOR 14 DAYS
  2. ENOXAPARIN SODIUM [Concomitant]
     Active Substance: ENOXAPARIN SODIUM
     Indication: Vein disorder
  3. ATOSSA [Concomitant]
     Indication: Congenital eye disorder
     Dosage: 1 TABLET IN CASE OF NAUSEA, VOMITING. MAX 2 TABLETS A DAY
  4. FINASTERIDE [Concomitant]
     Active Substance: FINASTERIDE
  5. NEUROVIT [Concomitant]
     Indication: Mononeuropathy
     Dosage: 1X1TABLET
  6. DROTAVERINE HYDROCHLORIDE [Concomitant]
     Active Substance: DROTAVERINE HYDROCHLORIDE
     Indication: Pain
     Dosage: IN CASE OF PAIN
  7. DOXAR [Concomitant]

REACTIONS (5)
  - Hydronephrosis [Recovering/Resolving]
  - Pyelocaliectasis [Recovering/Resolving]
  - Blood creatinine increased [Recovering/Resolving]
  - Oliguria [Recovering/Resolving]
  - Hyperkalaemia [Recovering/Resolving]

NARRATIVE: CASE EVENT DATE: 20201230
